FAERS Safety Report 13495822 (Version 1)
Quarter: 2017Q2

REPORT INFORMATION
  Report Type: Spontaneous
  Country: US (occurrence: US)
  Receive Date: 20170428
  Receipt Date: 20170428
  Transmission Date: 20170830
  Serious: Yes (Other)
  Sender: FDA-Public Use
  Company Number: US-PFIZER INC-2017177466

PATIENT
  Age: 42 Year
  Sex: Female
  Weight: 58.97 kg

DRUGS (7)
  1. LYRICA [Suspect]
     Active Substance: PREGABALIN
     Indication: FIBROMYALGIA
     Dosage: UNK
     Dates: start: 2009
  2. TOPIRAMATE. [Concomitant]
     Active Substance: TOPIRAMATE
     Indication: MOOD ALTERED
  3. LYRICA [Suspect]
     Active Substance: PREGABALIN
     Dosage: 150 MG, 3X/DAY
     Dates: start: 20170410
  4. TOPIRAMATE. [Concomitant]
     Active Substance: TOPIRAMATE
     Indication: PAIN
     Dosage: 50 MG, 2X/DAY
  5. LYRICA [Suspect]
     Active Substance: PREGABALIN
     Dosage: UNK
     Dates: start: 20170329
  6. TRAMADOL. [Concomitant]
     Active Substance: TRAMADOL
     Indication: PAIN
     Dosage: 100 MG, 4X/DAY
     Dates: start: 2015
  7. LYRICA [Suspect]
     Active Substance: PREGABALIN
     Dosage: 100 MG, 3X/DAY
     Dates: start: 20170213, end: 20170317

REACTIONS (11)
  - Amnesia [Unknown]
  - Withdrawal syndrome [Unknown]
  - Migraine [Unknown]
  - Blood pressure increased [Unknown]
  - Drug tolerance [Unknown]
  - Depression [Unknown]
  - Malaise [Unknown]
  - Dehydration [Unknown]
  - Fatigue [Unknown]
  - Heart rate abnormal [Unknown]
  - Vomiting projectile [Unknown]

NARRATIVE: CASE EVENT DATE: 2009
